FAERS Safety Report 20780815 (Version 2)
Quarter: 2022Q2

REPORT INFORMATION
  Report Type: Spontaneous
  Country: DE (occurrence: DE)
  Receive Date: 20220504
  Receipt Date: 20220527
  Transmission Date: 20220721
  Serious: Yes (Hospitalization)
  Sender: FDA-Public Use
  Company Number: DE-PFIZER INC-202200451878

PATIENT
  Age: 84 Year
  Sex: Female
  Weight: 55 kg

DRUGS (31)
  1. ANASTROZOLE [Suspect]
     Active Substance: ANASTROZOLE
     Indication: Breast cancer
     Dosage: 1 MG, DAILY
     Route: 048
     Dates: start: 20220117
  2. PALBOCICLIB [Suspect]
     Active Substance: PALBOCICLIB
     Indication: Breast cancer
     Dosage: 100 MG, DAILY FROM DAY 1 TO DAY 21 EVERY 28-DAY CYCLE ; CYCLICAL
     Route: 048
     Dates: start: 20220222
  3. PALBOCICLIB [Suspect]
     Active Substance: PALBOCICLIB
     Dosage: 125 MG, DAILY FROM DAY 1 TO DAY 21 EVERY 28-DAY CYCLE ; CYCLICAL
     Route: 048
     Dates: start: 20220127, end: 20220205
  4. AMLODIPINE HEXAL [Concomitant]
     Indication: Hypertonia
     Dosage: UNK ()
     Route: 048
     Dates: start: 20220112
  5. TOLVAPTAN [Concomitant]
     Active Substance: TOLVAPTAN
     Indication: Hyponatraemia
     Dosage: UNK ()
     Route: 048
     Dates: start: 20220120, end: 20220121
  6. TOLVAPTAN [Concomitant]
     Active Substance: TOLVAPTAN
     Indication: Hyponatraemia
  7. PANTOPRAZOLE [Concomitant]
     Active Substance: PANTOPRAZOLE
     Indication: Prophylaxis
     Dosage: UNK ()
     Route: 065
     Dates: start: 20220117
  8. PALLADONE [Concomitant]
     Active Substance: HYDROMORPHONE HYDROCHLORIDE
     Indication: Back pain
     Dosage: UNK ()
     Route: 065
     Dates: start: 20220117
  9. RIBODRONAT [Concomitant]
     Dosage: UNK ()
     Route: 042
     Dates: start: 20220209
  10. RIBODRONAT [Concomitant]
     Indication: Prophylaxis
  11. FUROSEMIDE [Concomitant]
     Active Substance: FUROSEMIDE
     Indication: Pleural effusion
     Dosage: UNK ()
     Route: 042
     Dates: start: 20220131, end: 20220131
  12. FUROSEMIDE [Concomitant]
     Active Substance: FUROSEMIDE
     Indication: Pleural effusion
  13. NALOXONE HYDROCHLORIDE\TILIDINE HYDROCHLORIDE [Concomitant]
     Active Substance: NALOXONE HYDROCHLORIDE\TILIDINE HYDROCHLORIDE
     Indication: Back pain
     Dosage: UNK ()
     Route: 048
     Dates: start: 20220113, end: 20220117
  14. NALOXONE HYDROCHLORIDE\TILIDINE HYDROCHLORIDE [Concomitant]
     Active Substance: NALOXONE HYDROCHLORIDE\TILIDINE HYDROCHLORIDE
     Dosage: UNK ()
     Route: 048
     Dates: start: 20220110, end: 20220112
  15. BISOPROLOL [Concomitant]
     Active Substance: BISOPROLOL
     Indication: Hypertonia
     Dosage: UNK ()
     Route: 048
     Dates: start: 20220117
  16. TORSEMIDE [Concomitant]
     Active Substance: TORSEMIDE
     Indication: Pleural effusion
     Dosage: UNK ()
     Route: 048
     Dates: start: 20220128, end: 20220131
  17. TORSEMIDE [Concomitant]
     Active Substance: TORSEMIDE
     Dosage: UNK ()
     Route: 048
     Dates: start: 20220201, end: 20220204
  18. TORSEMIDE [Concomitant]
     Active Substance: TORSEMIDE
     Dosage: UNK ()
     Route: 048
     Dates: start: 20220205
  19. MOXIFLOXACIN [Concomitant]
     Active Substance: MOXIFLOXACIN
     Indication: Pneumonia
     Dosage: UNK ()
     Route: 048
     Dates: start: 20220201, end: 20220208
  20. MOXIFLOXACIN [Concomitant]
     Active Substance: MOXIFLOXACIN
     Indication: Pneumonia
  21. RAMIPRIL [Concomitant]
     Active Substance: RAMIPRIL
     Indication: Hypertonia
     Dosage: UNK ()
     Route: 048
     Dates: start: 20220111, end: 20220119
  22. NIFEDIPINE [Concomitant]
     Active Substance: NIFEDIPINE
     Indication: Hypertonia
     Dosage: UNK ()
     Route: 048
     Dates: start: 20220113, end: 20220113
  23. POTASSIUM CHLORIDE [Concomitant]
     Active Substance: POTASSIUM CHLORIDE
     Indication: Prophylaxis
     Dosage: UNK ()
     Route: 048
     Dates: start: 20220131, end: 20220201
  24. POTASSIUM CHLORIDE [Concomitant]
     Active Substance: POTASSIUM CHLORIDE
     Indication: Prophylaxis
  25. SPIRONOLACTONE [Concomitant]
     Active Substance: SPIRONOLACTONE
     Indication: Hypertonia
     Dosage: UNK ()
     Route: 048
     Dates: start: 20220208
  26. METAMIZOLE [Concomitant]
     Active Substance: METAMIZOLE
     Indication: Back pain
     Dosage: UNK ()
     Route: 048
     Dates: start: 20220110
  27. KALINOR POTASSIUM CHLORIDE [Concomitant]
     Indication: Hypokalaemia
     Dosage: UNK ()
     Route: 048
     Dates: start: 20220128, end: 20220130
  28. DOXAZOSIN [Concomitant]
     Active Substance: DOXAZOSIN MESYLATE
     Indication: Hypertonia
     Dosage: UNK ()
     Route: 048
     Dates: start: 20220122
  29. PIPERACILLIN SODIUM\TAZOBACTAM SODIUM [Concomitant]
     Active Substance: PIPERACILLIN SODIUM\TAZOBACTAM SODIUM
     Indication: Pneumonia
     Dosage: UNK ()
     Route: 042
     Dates: start: 20220124, end: 20220201
  30. PIPERACILLIN SODIUM\TAZOBACTAM SODIUM [Concomitant]
     Active Substance: PIPERACILLIN SODIUM\TAZOBACTAM SODIUM
     Indication: Pneumonia
  31. FURORESE FUROSEMIDE [Concomitant]
     Indication: Pleural effusion
     Dosage: UNK ()
     Route: 042
     Dates: start: 20220127, end: 20220128

REACTIONS (1)
  - Leukopenia [Recovered/Resolved]

NARRATIVE: CASE EVENT DATE: 20220314
